FAERS Safety Report 6110481-3 (Version None)
Quarter: 2009Q1

REPORT INFORMATION
  Report Type: 
  Country: None (occurrence: None)
  Receive Date: 20090310
  Receipt Date: 20090302
  Transmission Date: 20090719
  Serious: Yes (Hospitalization, Other)
  Sender: FDA-Public Use
  Company Number: PHHY2008JP31749

PATIENT
  Sex: Male
  Weight: 15 kg

DRUGS (4)
  1. TEGRETOL [Suspect]
     Indication: EPILEPSY
     Dosage: 5 MG/KG/DAY
     Route: 048
     Dates: start: 20081107, end: 20081118
  2. TEGRETOL [Suspect]
     Dosage: 80 MG/DAY
     Route: 048
     Dates: start: 20081128, end: 20081128
  3. TEGRETOL [Suspect]
     Dosage: UNK
     Route: 048
     Dates: start: 20081129
  4. SELENICA-R [Suspect]
     Indication: EPILEPSY
     Dosage: 500 MG/DAY
     Route: 048
     Dates: start: 20060101

REACTIONS (12)
  - COUGH [None]
  - FLUSHING [None]
  - GENERALISED ERYTHEMA [None]
  - HISTIOCYTOSIS HAEMATOPHAGIC [None]
  - LIVER DISORDER [None]
  - PANCYTOPENIA [None]
  - PLATELET COUNT DECREASED [None]
  - PYREXIA [None]
  - RASH [None]
  - RHINORRHOEA [None]
  - SERUM FERRITIN INCREASED [None]
  - WHITE BLOOD CELL COUNT DECREASED [None]
